FAERS Safety Report 11495311 (Version 1)
Quarter: 2015Q3

REPORT INFORMATION
  Report Type: Spontaneous
  Country: US (occurrence: US)
  Receive Date: 20150911
  Receipt Date: 20150911
  Transmission Date: 20151125
  Serious: Yes (Hospitalization, Other)
  Sender: FDA-Public Use
  Company Number: US-ROCHE-1013798

PATIENT
  Sex: Female

DRUGS (4)
  1. AVAPRO [Concomitant]
     Active Substance: IRBESARTAN
  2. PEGASYS [Suspect]
     Active Substance: PEGINTERFERON ALFA-2A
     Indication: CHRONIC HEPATITIS C
     Dosage: LENGTH OF THERAPY 28-42 WEEKS
     Route: 058
     Dates: start: 20110630
  3. RIBAVIRIN. [Concomitant]
     Active Substance: RIBAVIRIN
     Indication: CHRONIC HEPATITIS C
     Dosage: DIVIDED DOSES, LENGTH OF THERAPY 28-42 WEEKS
     Route: 048
  4. INCIVEK [Concomitant]
     Active Substance: TELAPREVIR
     Indication: CHRONIC HEPATITIS C
     Dosage: LENGTH OF THERAPY 28-42 WEEKS
     Route: 065

REACTIONS (12)
  - Rectal haemorrhage [Unknown]
  - Hypothyroidism [Unknown]
  - Vertigo [Unknown]
  - Haemoglobin decreased [Unknown]
  - Weight decreased [Unknown]
  - Diarrhoea [Unknown]
  - Nausea [Unknown]
  - Serum ferritin increased [Unknown]
  - Haematocrit decreased [Unknown]
  - Fatigue [Unknown]
  - Dyspnoea [Unknown]
  - Bone pain [Unknown]
